FAERS Safety Report 19707601 (Version 3)
Quarter: 2021Q4

REPORT INFORMATION
  Report Type: Spontaneous
  Country: US (occurrence: US)
  Receive Date: 20210817
  Receipt Date: 20211110
  Transmission Date: 20220303
  Serious: Yes (Hospitalization, Other)
  Sender: FDA-Public Use
  Company Number: US-SA-SAC20210813001034

PATIENT
  Age: 49 Year
  Sex: Female

DRUGS (3)
  1. DUPIXENT [Suspect]
     Active Substance: DUPILUMAB
     Dosage: 300 MG, QOW
     Route: 058
     Dates: start: 20200923
  2. LINZESS [Suspect]
     Active Substance: LINACLOTIDE
     Indication: Gastric disorder
     Dosage: UNK
  3. TRULANCE [Concomitant]
     Active Substance: PLECANATIDE
     Dosage: UNK

REACTIONS (5)
  - Vascular rupture [Unknown]
  - Rectal haemorrhage [Unknown]
  - Functional gastrointestinal disorder [Recovered/Resolved]
  - Dehydration [Unknown]
  - Drug interaction [Unknown]

NARRATIVE: CASE EVENT DATE: 20210805
